FAERS Safety Report 4874547-8 (Version None)
Quarter: 2006Q1

REPORT INFORMATION
  Report Type: 
  Country: None (occurrence: None)
  Receive Date: 20060106
  Receipt Date: 20051229
  Transmission Date: 20060701
  Serious: Yes (Hospitalization, Other)
  Sender: FDA-Public Use
  Company Number: US-AVENTIS-200520941US

PATIENT
  Sex: Female

DRUGS (9)
  1. LANTUS [Suspect]
     Indication: DIABETES MELLITUS NON-INSULIN-DEPENDENT
     Dosage: DOSE UNIT: UNITS
  2. OPTICLIK (INSULIN INJECTION PEN) [Suspect]
     Indication: DIABETES MELLITUS NON-INSULIN-DEPENDENT
  3. DRUG USED IN DIABETES [Concomitant]
     Dosage: DOSE: UNKNOWN
  4. GLUCOPHAGE [Concomitant]
     Dosage: DOSE: UNKNOWN
  5. SYNTHROID [Concomitant]
     Dosage: DOSE: UNKNOWN
  6. WELLBUTRIN [Concomitant]
     Dosage: DOSE: UNKNOWN
  7. VITAMINS [Concomitant]
     Dosage: DOSE: UNKNOWN
  8. FLONASE [Concomitant]
     Dosage: DOSE: UNKNOWN
  9. ALLEGRA [Concomitant]
     Dosage: DOSE: UNKNOWN

REACTIONS (2)
  - DIABETIC KETOACIDOSIS [None]
  - HYPERGLYCAEMIA [None]
